FAERS Safety Report 18312899 (Version 1)
Quarter: 2020Q3

REPORT INFORMATION
  Report Type: Spontaneous
  Country: NL (occurrence: NL)
  Receive Date: 20200925
  Receipt Date: 20200925
  Transmission Date: 20201103
  Serious: Yes (Other)
  Sender: FDA-Public Use
  Company Number: NL-MYLANLABS-2020M1080721

PATIENT
  Sex: Female
  Weight: 67 kg

DRUGS (1)
  1. AMITRIPTYLINE [Suspect]
     Active Substance: AMITRIPTYLINE
     Indication: NEURALGIA
     Dosage: 10 MILLIGRAM, QD 1X PER DAG 1 STUK
     Dates: start: 20191219, end: 20200130

REACTIONS (2)
  - Withdrawal syndrome [Not Recovered/Not Resolved]
  - Arrhythmia [Recovered/Resolved]
